FAERS Safety Report 14692787 (Version 1)
Quarter: 2018Q1

REPORT INFORMATION
  Report Type: Spontaneous
  Country: RU (occurrence: RU)
  Receive Date: 20180329
  Receipt Date: 20180329
  Transmission Date: 20180509
  Serious: Yes (Hospitalization, Other)
  Sender: FDA-Public Use
  Company Number: RU-ASTRAZENECA-2018SE37856

PATIENT
  Age: 58 Year
  Sex: Female
  Weight: 97 kg

DRUGS (7)
  1. THROMBO ASS [Concomitant]
     Active Substance: ASPIRIN
  2. OMEPRAZOLE. [Concomitant]
     Active Substance: OMEPRAZOLE
  3. ROSUVASTATIN. [Concomitant]
     Active Substance: ROSUVASTATIN
  4. BRILINTA [Suspect]
     Active Substance: TICAGRELOR
     Indication: MYOCARDIAL INFARCTION
     Route: 048
     Dates: start: 20170303
  5. INDAPAMIDE. [Concomitant]
     Active Substance: INDAPAMIDE
  6. HEPARIN [Concomitant]
     Active Substance: HEPARIN SODIUM
     Dosage: INJECTION 2 TIMES ONLY
  7. BISOPROLOL [Concomitant]
     Active Substance: BISOPROLOL

REACTIONS (4)
  - Off label use [Unknown]
  - Angina unstable [Unknown]
  - Dyspnoea exertional [Not Recovered/Not Resolved]
  - Incorrect drug administration duration [Unknown]

NARRATIVE: CASE EVENT DATE: 201703
